FAERS Safety Report 7927970 (Version 3)
Quarter: 2013Q1

REPORT INFORMATION
  Report Type: Spontaneous
  Country: US (occurrence: None)
  Receive Date: 20110411
  Receipt Date: 20130222
  Transmission Date: 20140127
  Serious: Yes (Other)
  Sender: FDA-Public Use
  Company Number: ACO_22912_2011

PATIENT
  Age: 41 Year
  Sex: Male

DRUGS (8)
  1. AMPYRA [Suspect]
     Indication: MULTIPLE SCLEROSIS
     Dates: start: 201005, end: 201007
  2. AMPYRA [Suspect]
     Indication: HEMIPARESIS
     Dates: start: 201005, end: 201007
  3. AMPYRA [Suspect]
     Indication: ASTHENIA
     Dates: start: 201005, end: 201007
  4. AMPYRA [Suspect]
     Indication: BALANCE DISORDER
     Dates: start: 201005, end: 201007
  5. AVONEX [Concomitant]
  6. ASPIRIN (ACETYLSALICYLIC ACID) [Concomitant]
  7. MULTI-VITAMIN [Concomitant]
  8. VITAMIN B NOS (VITAMIN B NOS) [Concomitant]

REACTIONS (7)
  - Loss of consciousness [None]
  - Dehydration [None]
  - Laceration [None]
  - Syncope [None]
  - Dizziness [None]
  - Blood pressure orthostatic abnormal [None]
  - Head injury [None]
